FAERS Safety Report 18126929 (Version 3)
Quarter: 2021Q1

REPORT INFORMATION
  Report Type: Report from Study
  Country: US (occurrence: US)
  Receive Date: 20200810
  Receipt Date: 20210107
  Transmission Date: 20210419
  Serious: No
  Sender: FDA-Public Use
  Company Number: US-AMGEN-USASP2020125462

PATIENT
  Age: 86 Year
  Sex: Female

DRUGS (1)
  1. PROLIA [Suspect]
     Active Substance: DENOSUMAB
     Indication: OSTEOPOROSIS POSTMENOPAUSAL
     Dosage: 60 MILLIGRAM
     Route: 065
     Dates: start: 2018

REACTIONS (18)
  - Scoliosis [Unknown]
  - Ear pain [Unknown]
  - Bone pain [Unknown]
  - Arthralgia [Unknown]
  - Rash [Unknown]
  - Toothache [Not Recovered/Not Resolved]
  - Musculoskeletal stiffness [Unknown]
  - Dry skin [Unknown]
  - Asthenia [Unknown]
  - Otorrhoea [Unknown]
  - Pain in extremity [Unknown]
  - Vision blurred [Unknown]
  - Hypoacusis [Unknown]
  - Pain [Unknown]
  - Myalgia [Unknown]
  - Blood calcium decreased [Unknown]
  - Tooth extraction [Unknown]
  - Arthropathy [Unknown]

NARRATIVE: CASE EVENT DATE: 2018
